FAERS Safety Report 15745301 (Version 2)
Quarter: 2019Q1

REPORT INFORMATION
  Report Type: Spontaneous
  Country: US (occurrence: US)
  Receive Date: 20181220
  Receipt Date: 20190122
  Transmission Date: 20190417
  Serious: Yes (Hospitalization, Other)
  Sender: FDA-Public Use
  Company Number: US-GLAXOSMITHKLINE-US2018227610

PATIENT
  Age: 61 Year
  Sex: Male
  Weight: 86.17 kg

DRUGS (3)
  1. VENTOLIN HFA [Suspect]
     Active Substance: ALBUTEROL SULFATE
     Indication: DYSPNOEA
     Dosage: 2 PUFF(S), Z
     Route: 055
     Dates: start: 20180107
  2. VENTOLIN HFA [Suspect]
     Active Substance: ALBUTEROL SULFATE
     Indication: COUGH
  3. VENTOLIN HFA [Suspect]
     Active Substance: ALBUTEROL SULFATE
     Indication: WHEEZING

REACTIONS (9)
  - Spinal operation [Unknown]
  - Intervertebral disc degeneration [Unknown]
  - Spinal fusion surgery [Unknown]
  - Limb injury [Unknown]
  - Gait inability [Unknown]
  - Hypoaesthesia [Unknown]
  - Anal incontinence [Recovered/Resolved]
  - Fall [Unknown]
  - Arthralgia [Unknown]

NARRATIVE: CASE EVENT DATE: 2018
